FAERS Safety Report 24126145 (Version 1)
Quarter: 2024Q3

REPORT INFORMATION
  Report Type: Spontaneous
  Country: DE (occurrence: DE)
  Receive Date: 20240723
  Receipt Date: 20240723
  Transmission Date: 20241017
  Serious: Yes (Death)
  Sender: AMGEN
  Company Number: DE-AMGEN-DEUSP2024141868

PATIENT

DRUGS (3)
  1. PEGFILGRASTIM [Suspect]
     Active Substance: PEGFILGRASTIM
     Indication: Prophylaxis
     Dosage: 6 MILLIGRAM, Q2WK
     Route: 065
  2. ALEMTUZUMAB [Concomitant]
     Active Substance: ALEMTUZUMAB
     Indication: Chronic lymphocytic leukaemia
     Dosage: 30 MILLIGRAM, 3 TIMES/WK
     Route: 058
  3. DEXAMETHASONE [Concomitant]
     Active Substance: DEXAMETHASONE
     Indication: Chronic lymphocytic leukaemia
     Dosage: 40 MILLIGRAM, 1-4 AND 15-18 DAYS
     Route: 048

REACTIONS (1)
  - Infection [Fatal]
